FAERS Safety Report 21126137 (Version 2)
Quarter: 2022Q3

REPORT INFORMATION
  Report Type: Report from Study
  Country: US (occurrence: None)
  Receive Date: 20220725
  Receipt Date: 20220801
  Transmission Date: 20221027
  Serious: Yes (Other)
  Sender: FDA-Public Use
  Company Number: US-Merck Healthcare KGaA-9337644

PATIENT
  Sex: Female
  Weight: 77 kg

DRUGS (1)
  1. REBIF [Suspect]
     Active Substance: INTERFERON BETA-1A
     Indication: Multiple sclerosis
     Dosage: PREVIOUSLY REBIF PREFILLED SYRINGE
     Route: 058
     Dates: start: 20181219

REACTIONS (7)
  - Cardiac valve disease [Unknown]
  - Cardiac disorder [Unknown]
  - Stress [Unknown]
  - Weight increased [Unknown]
  - Skin discolouration [Unknown]
  - Pain in extremity [Unknown]
  - Cardiac discomfort [Unknown]
